FAERS Safety Report 10378406 (Version 1)
Quarter: 2014Q3

REPORT INFORMATION
  Report Type: Spontaneous
  Country: BR (occurrence: BR)
  Receive Date: 20140812
  Receipt Date: 20140812
  Transmission Date: 20150326
  Serious: Yes (Other)
  Sender: FDA-Public Use
  Company Number: BR-PFIZER INC-2014219796

PATIENT
  Age: 58 Year
  Sex: Female
  Weight: 56 kg

DRUGS (6)
  1. XALATAN [Suspect]
     Active Substance: LATANOPROST
     Indication: GLAUCOMA
     Dosage: 1 DROP IN EACH EYE ONCE AT NIGHT
     Route: 047
     Dates: start: 2009, end: 2013
  2. DOLAMIN [Concomitant]
     Indication: INTERVERTEBRAL DISC PROTRUSION
  3. GLIMEPIRIDA [Concomitant]
     Active Substance: GLIMEPIRIDE
     Dosage: 1 TABLET DAILY
     Dates: start: 2006
  4. SIMVASTATIN. [Concomitant]
     Active Substance: SIMVASTATIN
     Indication: BLOOD CHOLESTEROL
     Dosage: 1 TABLET PER DAY (AT NIGHT)
     Dates: start: 2011
  5. METFORMIN [Concomitant]
     Active Substance: METFORMIN HYDROCHLORIDE
     Indication: DIABETES MELLITUS
     Dosage: 1 TABLET, DAILY
     Dates: start: 2006
  6. DOLAMIN [Concomitant]
     Indication: MYALGIA
     Dosage: 1 TABLET WHEN PAIN STARTS OR 3 TABLETS WHEN SHE IS WITH STRONG PAINS
     Dates: start: 201402

REACTIONS (2)
  - Intraocular pressure increased [Unknown]
  - Tongue neoplasm malignant stage unspecified [Not Recovered/Not Resolved]

NARRATIVE: CASE EVENT DATE: 200902
